FAERS Safety Report 19584097 (Version 1)
Quarter: 2021Q3

REPORT INFORMATION
  Report Type: Spontaneous
  Country: CA (occurrence: CA)
  Receive Date: 20210720
  Receipt Date: 20210720
  Transmission Date: 20211014
  Serious: Yes (Hospitalization)
  Sender: FDA-Public Use
  Company Number: CA-UPSHER-SMITH LABORATORIES, LLC-2021USL00497

PATIENT
  Age: 62 Year
  Sex: Male

DRUGS (1)
  1. TESTOSTERONE. [Suspect]
     Active Substance: TESTOSTERONE
     Dosage: 120 MG, 1X/WEEK
     Route: 065

REACTIONS (2)
  - Venous thrombosis [Unknown]
  - Intestinal ischaemia [Unknown]
